FAERS Safety Report 9532287 (Version 1)
Quarter: 2013Q2

REPORT INFORMATION
  Report Type: Spontaneous
  Country: FR (occurrence: None)
  Receive Date: 20130403
  Receipt Date: 20130403
  Transmission Date: 20140414
  Serious: Yes (Other)
  Sender: FDA-Public Use
  Company Number: US-2012-10140

PATIENT
  Age: 44 Year
  Sex: Female

DRUGS (7)
  1. BUSULFEX [Suspect]
     Indication: BONE MARROW CONDITIONING REGIMEN
     Route: 042
  2. MELPHALAN [Concomitant]
  3. MTX (METHOTREXATE) [Concomitant]
  4. CYCLOSPORIN [Concomitant]
  5. DAUNORUBICIN (DAUNORUBICIN HYDROCHLORIDE) [Concomitant]
  6. ARACYTINE (CYTARABINE) [Concomitant]
  7. CARDIOXANE (DEXAZOXANE HYDROCHLORIDE) [Concomitant]

REACTIONS (2)
  - Left ventricular failure [None]
  - Herpes virus infection [None]
